FAERS Safety Report 19084430 (Version 1)
Quarter: 2021Q2

REPORT INFORMATION
  Report Type: Spontaneous
  Country: US (occurrence: US)
  Receive Date: 20210401
  Receipt Date: 20210401
  Transmission Date: 20210717
  Serious: No
  Sender: FDA-Public Use
  Company Number: US-ASTRAZENECA-2021A160958

PATIENT
  Age: 25180 Day
  Sex: Female

DRUGS (9)
  1. ESOMEPRAZOLE MAGNESIUM ? UNKNOWN [Suspect]
     Active Substance: ESOMEPRAZOLE MAGNESIUM
     Indication: BARRETT^S OESOPHAGUS
     Route: 048
     Dates: start: 202003, end: 202006
  2. PEPCID OTC [Concomitant]
     Active Substance: FAMOTIDINE
     Route: 065
     Dates: start: 20210119, end: 20210119
  3. NEXIUM 24HR [Suspect]
     Active Substance: ESOMEPRAZOLE MAGNESIUM
     Indication: GASTRITIS
     Route: 048
     Dates: start: 20210309
  4. NEXIUM 24HR [Suspect]
     Active Substance: ESOMEPRAZOLE MAGNESIUM
     Indication: GASTROOESOPHAGEAL REFLUX DISEASE
     Route: 048
     Dates: start: 20210309
  5. ESOMEPRAZOLE MAGNESIUM ? AUROBINDO [Suspect]
     Active Substance: ESOMEPRAZOLE MAGNESIUM
     Indication: BARRETT^S OESOPHAGUS
     Route: 048
     Dates: end: 20210301
  6. PRESERVISION [Concomitant]
     Active Substance: MINERALS\VITAMINS
     Indication: VISUAL IMPAIRMENT
     Dosage: DAILY
     Route: 048
  7. NEXIUM [Suspect]
     Active Substance: ESOMEPRAZOLE MAGNESIUM
     Indication: GASTRITIS
     Route: 048
     Dates: end: 202003
  8. CALCIUM AND VITAMIN D [Concomitant]
     Active Substance: CALCIUM\VITAMIN D
     Indication: MINERAL SUPPLEMENTATION
     Dosage: DAILY
     Route: 048
  9. ESOMEPRAZOLE MAGNESIUM ? AUROBINDO [Suspect]
     Active Substance: ESOMEPRAZOLE MAGNESIUM
     Indication: BARRETT^S OESOPHAGUS
     Route: 048
     Dates: start: 202006, end: 20210119

REACTIONS (9)
  - Nausea [Not Recovered/Not Resolved]
  - Paraesthesia [Not Recovered/Not Resolved]
  - Ill-defined disorder [Unknown]
  - Gastrooesophageal reflux disease [Not Recovered/Not Resolved]
  - Product dose omission issue [Recovered/Resolved]
  - Hypertension [Recovered/Resolved]
  - Barrett^s oesophagus [Unknown]
  - Salivary hypersecretion [Recovered/Resolved]
  - Palpitations [Recovered/Resolved]

NARRATIVE: CASE EVENT DATE: 20210119
